FAERS Safety Report 4545812-9 (Version None)
Quarter: 2005Q1

REPORT INFORMATION
  Report Type: 
  Country: None (occurrence: None)
  Receive Date: 20050103
  Receipt Date: 20041221
  Transmission Date: 20050727
  Serious: Yes (Disabling, Other)
  Sender: FDA-Public Use
  Company Number: 2004117952

PATIENT
  Age: 57 Year
  Sex: Female

DRUGS (5)
  1. CELEBREX [Suspect]
     Indication: OSTEOARTHRITIS
     Dosage: 200 MG (200 MG, 1 IN 1 D), ORAL
     Route: 048
  2. BEXTRA [Suspect]
     Indication: OSTEOARTHRITIS
     Dosage: ORAL
     Route: 048
     Dates: start: 20040213
  3. LEVOTHYROXINE SODIUM [Concomitant]
  4. ESCITALOPRAM (ESCITALOPRAM) [Concomitant]
  5. ATORVASTATIN (ATORVASTATIN) [Concomitant]

REACTIONS (6)
  - ARTHRITIS [None]
  - BODY HEIGHT DECREASED [None]
  - BREAST CANCER [None]
  - COLONIC POLYP [None]
  - DISEASE PROGRESSION [None]
  - DRUG EFFECT DECREASED [None]
